FAERS Safety Report 6157892-8 (Version None)
Quarter: 2009Q2

REPORT INFORMATION
  Report Type: 
  Country: None (occurrence: None)
  Receive Date: 20090417
  Receipt Date: 20090407
  Transmission Date: 20091009
  Serious: Yes (Hospitalization)
  Sender: FDA-Public Use
  Company Number: GB-RANBAXY-2009RR-23322

PATIENT
  Age: 61 Year
  Sex: Male

DRUGS (5)
  1. IBUPROFEN [Suspect]
     Indication: BACK PAIN
     Dosage: 400 MG, TID
     Route: 048
     Dates: end: 20090316
  2. IBUPROFEN [Suspect]
     Indication: MUSCULOSKELETAL PAIN
  3. AMITRIPTYLINE HCL [Concomitant]
     Indication: SEDATION
     Dosage: UNK
     Route: 048
     Dates: start: 20051201
  4. ACETAMINOPHEN W/ CODEINE [Concomitant]
     Indication: ANALGESIA
     Dosage: 2 DF, BID
     Route: 048
  5. LANSOPRAZOLE [Concomitant]
     Dosage: 30 MG, UNK
     Route: 048

REACTIONS (2)
  - DYSPEPSIA [None]
  - HAEMATEMESIS [None]
